FAERS Safety Report 4362714-1 (Version None)
Quarter: 2004Q2

REPORT INFORMATION
  Report Type: 
  Country: None (occurrence: None)
  Receive Date: 20040518
  Receipt Date: 20040511
  Transmission Date: 20050107
  Serious: Yes (Hospitalization)
  Sender: FDA-Public Use
  Company Number: 2004031527

PATIENT
  Age: 12 Year
  Sex: Male
  Weight: 58.9676 kg

DRUGS (1)
  1. BENADRYL [Suspect]
     Dosage: ORAL
     Route: 048

REACTIONS (1)
  - OVERDOSE [None]
